FAERS Safety Report 4377489-X (Version None)
Quarter: 2004Q2

REPORT INFORMATION
  Report Type: 
  Country: None (occurrence: None)
  Receive Date: 20040609
  Receipt Date: 20040526
  Transmission Date: 20050107
  Serious: Yes (Other)
  Sender: FDA-Public Use
  Company Number: EWC040539424

PATIENT
  Age: 23 Year
  Sex: Male

DRUGS (1)
  1. OLANZAPINE [Suspect]
     Indication: MANIA
     Dosage: 2.5 MG DAY
     Dates: start: 20040219, end: 20040401

REACTIONS (4)
  - ALANINE AMINOTRANSFERASE INCREASED [None]
  - ASPARTATE AMINOTRANSFERASE INCREASED [None]
  - CONDITION AGGRAVATED [None]
  - PSYCHOTIC DISORDER [None]
